FAERS Safety Report 14950180 (Version 1)
Quarter: 2018Q2

REPORT INFORMATION
  Report Type: Spontaneous
  Country: FR (occurrence: FR)
  Receive Date: 20180530
  Receipt Date: 20180530
  Transmission Date: 20180711
  Serious: Yes (Other)
  Sender: FDA-Public Use
  Company Number: FR-MERCK KGAA-2048640

PATIENT
  Age: 66 Year
  Sex: Female

DRUGS (1)
  1. NOVOTHYROX [Suspect]
     Active Substance: LEVOTHYROXINE SODIUM
     Indication: HYPOTHYROIDISM
     Dates: end: 20170912

REACTIONS (28)
  - Polyarthritis [Recovered/Resolved]
  - Mobility decreased [Recovering/Resolving]
  - Fatigue [None]
  - Irritability [Recovering/Resolving]
  - Somnambulism [Recovering/Resolving]
  - Pain [Recovering/Resolving]
  - Balance disorder [Recovering/Resolving]
  - Decreased interest [Recovering/Resolving]
  - Headache [Recovered/Resolved]
  - Abdominal pain [Recovered/Resolved]
  - Alopecia [Recovering/Resolving]
  - Vocal cord disorder [Recovering/Resolving]
  - Loss of personal independence in daily activities [Recovering/Resolving]
  - Erythema [Recovered/Resolved]
  - Peripheral venous disease [Recovered/Resolved]
  - Oedema peripheral [Recovering/Resolving]
  - Vomiting [Recovering/Resolving]
  - Vision blurred [Recovering/Resolving]
  - Dizziness [Recovered/Resolved]
  - Emotional distress [Recovering/Resolving]
  - Loss of libido [Recovering/Resolving]
  - Suicidal ideation [Recovering/Resolving]
  - Rhinitis allergic [Recovered/Resolved]
  - Sinusitis [Recovered/Resolved]
  - Myalgia [Recovering/Resolving]
  - Amnesia [Recovering/Resolving]
  - Insomnia [Recovering/Resolving]
  - Social avoidant behaviour [Recovering/Resolving]

NARRATIVE: CASE EVENT DATE: 20170509
